FAERS Safety Report 25411940 (Version 1)
Quarter: 2025Q2

REPORT INFORMATION
  Report Type: Spontaneous
  Country: IN (occurrence: IN)
  Receive Date: 20250609
  Receipt Date: 20250609
  Transmission Date: 20250717
  Serious: Yes (Death, Life-Threatening, Hospitalization, Other)
  Sender: RANBAXY
  Company Number: IN-SUN PHARMACEUTICAL INDUSTRIES LTD-2025R1-510595

PATIENT
  Age: 76 Year
  Sex: Female

DRUGS (1)
  1. SUNITINIB [Suspect]
     Active Substance: SUNITINIB
     Indication: Renal cell carcinoma
     Dosage: 37.5 MILLIGRAM, DAILY
     Route: 065

REACTIONS (3)
  - Cachexia [Fatal]
  - Disease progression [Fatal]
  - Hyponatraemia [Recovering/Resolving]
